FAERS Safety Report 8024966-6 (Version None)
Quarter: 2012Q1

REPORT INFORMATION
  Report Type: 
  Country: None (occurrence: None)
  Receive Date: 20120105
  Receipt Date: 20111102
  Transmission Date: 20120608
  Serious: Yes (Hospitalization)
  Sender: FDA-Public Use
  Company Number: PHHY2011TR112790

PATIENT

DRUGS (4)
  1. CLOZAPINE [Suspect]
     Indication: PSYCHOTIC DISORDER
  2. ZUCLOPENTHIXOL DECANOATE [Concomitant]
     Dosage: 200 MG, EVERY 15 DAYS
  3. PROPRANOLOL [Concomitant]
     Dosage: 40 MG, DAILY
  4. FLUOXETINE [Concomitant]
     Dosage: 20 MG, DAILY

REACTIONS (10)
  - EPILEPSY [None]
  - MENTAL RETARDATION [None]
  - ILEUS [None]
  - PSYCHOTIC DISORDER [None]
  - ANXIETY [None]
  - BIPOLAR I DISORDER [None]
  - NEUTROPENIA [None]
  - INSOMNIA [None]
  - RESTLESSNESS [None]
  - ABNORMAL BEHAVIOUR [None]
